FAERS Safety Report 15866947 (Version 1)
Quarter: 2019Q1

REPORT INFORMATION
  Report Type: Spontaneous
  Country: AT (occurrence: AT)
  Receive Date: 20190125
  Receipt Date: 20190125
  Transmission Date: 20190417
  Serious: Yes (Death, Hospitalization)
  Sender: FDA-Public Use
  Company Number: AT-ACCORD-029436

PATIENT
  Age: 29 Year
  Sex: Female

DRUGS (4)
  1. CARBOPLATIN. [Suspect]
     Active Substance: CARBOPLATIN
     Indication: LUNG ADENOCARCINOMA STAGE IV
     Dosage: ADMINISTERED ONE CYCLE ON 06-JUN-2012.?ALSO RECEIVED ONE CYCLE ON 02-AUG-2013.
     Dates: start: 20120606
  2. DOCETAXEL. [Suspect]
     Active Substance: DOCETAXEL
     Indication: LUNG ADENOCARCINOMA STAGE IV
     Dosage: ADMINISTERED ONE CYCLE
     Dates: start: 20120606
  3. PEMETREXED. [Suspect]
     Active Substance: PEMETREXED
     Indication: LUNG ADENOCARCINOMA STAGE IV
     Dosage: RECEIVED ONE CYCLE
     Dates: start: 20130802
  4. AVASTIN [Suspect]
     Active Substance: BEVACIZUMAB
     Indication: LUNG ADENOCARCINOMA STAGE IV
     Dosage: RECEIVED ONE CYCLE
     Dates: start: 20130802

REACTIONS (3)
  - Neoplasm progression [Fatal]
  - Exposure during pregnancy [Unknown]
  - Therapy non-responder [Unknown]

NARRATIVE: CASE EVENT DATE: 20120606
